FAERS Safety Report 6698952-2 (Version None)
Quarter: 2010Q2

REPORT INFORMATION
  Report Type: 
  Country: None (occurrence: None)
  Receive Date: 20100427
  Receipt Date: 20100416
  Transmission Date: 20101027
  Serious: Yes (Other)
  Sender: FDA-Public Use
  Company Number: B0530577C

PATIENT
  Sex: Female
  Weight: 65.5 kg

DRUGS (5)
  1. LAPATINIB [Suspect]
     Indication: BREAST CANCER
     Dosage: 1500MG PER DAY
     Route: 048
     Dates: start: 20080715, end: 20080807
  2. TRASTUZUMAB [Suspect]
     Route: 042
  3. BISOPROLOL [Concomitant]
     Route: 048
     Dates: start: 20090323
  4. PROVAS [Concomitant]
     Dosage: 160MG PER DAY
     Route: 048
     Dates: start: 20081229
  5. FUROSEMID [Concomitant]
     Dosage: 40MG PER DAY
     Route: 048
     Dates: start: 20081119

REACTIONS (2)
  - CARDIAC FAILURE CONGESTIVE [None]
  - DYSPNOEA EXERTIONAL [None]
